FAERS Safety Report 9162758 (Version 1)
Quarter: 2013Q1

REPORT INFORMATION
  Report Type: Spontaneous
  Country: US (occurrence: None)
  Receive Date: 20130207
  Receipt Date: 20130207
  Transmission Date: 20140127
  Serious: Yes (Other)
  Sender: FDA-Public Use
  Company Number: USA/USA/13/0027817

PATIENT
  Age: 67 Year
  Sex: Male

DRUGS (10)
  1. AMLODIPINE BESYLATE [Suspect]
     Indication: PRODUCT USED FOR UNKNOWN INDICATION
  2. ROSUVASTATIN (ROSUVASTATIN) [Suspect]
     Indication: PRODUCT USED FOR UNKNOWN INDICATION
  3. SERTRALINE (SERTRALINE) (SERTRALINE) [Suspect]
     Indication: MAJOR DEPRESSION
  4. DULOXETINE [Suspect]
     Indication: MAJOR DEPRESSION
  5. DULOXETINE [Suspect]
  6. ALPRAZOLAM (ALPRAZOLAM) [Concomitant]
  7. METOPROLOL (METOPROLOL) [Concomitant]
  8. HYDROCHLOROTHIAZIDE/TRIAMTERENE (DYAZIDE) [Concomitant]
  9. METFORMIN (METFORMIN) [Concomitant]
  10. SITAGLIPTIN (SITAGLIPTINI) [Concomitant]

REACTIONS (8)
  - Drug interaction [None]
  - Gynaecomastia [None]
  - Breast tenderness [None]
  - Blood glucose increased [None]
  - Blood potassium decreased [None]
  - Glycosylated haemoglobin increased [None]
  - Hypogonadism [None]
  - Breast mass [None]
